FAERS Safety Report 9525459 (Version 1)
Quarter: 2013Q3

REPORT INFORMATION
  Report Type: Spontaneous
  Country: US (occurrence: None)
  Receive Date: 20130913
  Receipt Date: 20130913
  Transmission Date: 20140515
  Serious: Yes (Other)
  Sender: FDA-Public Use
  Company Number: None

PATIENT
  Age: 23 Year
  Sex: Female
  Weight: 108.86 kg

DRUGS (1)
  1. CEFTRIAXONE [Suspect]
     Indication: ARTHROPOD BITE
     Route: 030

REACTIONS (1)
  - Urticaria [None]
